FAERS Safety Report 5190919-9 (Version None)
Quarter: 2006Q4

REPORT INFORMATION
  Report Type: 
  Country: None (occurrence: None)
  Receive Date: 20061222
  Receipt Date: 20061215
  Transmission Date: 20070319
  Serious: Yes (Other)
  Sender: FDA-Public Use
  Company Number: JP-ABBOTT-06P-087-0353459-00

PATIENT
  Age: 64 Year
  Sex: Male

DRUGS (3)
  1. TRICOR [Suspect]
     Indication: HYPERLIPIDAEMIA
     Route: 048
     Dates: start: 20060821, end: 20061023
  2. MEDAZEPAM [Concomitant]
     Indication: DRUG USE FOR UNKNOWN INDICATION
     Dates: start: 20060801
  3. SULPIRIDE [Concomitant]
     Indication: DRUG USE FOR UNKNOWN INDICATION
     Dates: start: 20060801

REACTIONS (1)
  - LIVER DISORDER [None]
